FAERS Safety Report 18751288 (Version 4)
Quarter: 2021Q2

REPORT INFORMATION
  Report Type: Spontaneous
  Country: US (occurrence: US)
  Receive Date: 20210118
  Receipt Date: 20210519
  Transmission Date: 20210717
  Serious: No
  Sender: FDA-Public Use
  Company Number: US-CELGENEUS-USA-20210102281

PATIENT
  Sex: Female

DRUGS (1)
  1. POMALYST [Suspect]
     Active Substance: POMALIDOMIDE
     Indication: PLASMA CELL MYELOMA
     Dosage: 4 MILLIGRAM
     Route: 048
     Dates: start: 202012

REACTIONS (5)
  - Illness [Unknown]
  - Asthenia [Unknown]
  - Feeling abnormal [Not Recovered/Not Resolved]
  - Limb mass [Not Recovered/Not Resolved]
  - Feeding disorder [Unknown]
